FAERS Safety Report 14149747 (Version 2)
Quarter: 2017Q4

REPORT INFORMATION
  Report Type: Spontaneous
  Country: US (occurrence: US)
  Receive Date: 20171101
  Receipt Date: 20171107
  Transmission Date: 20180321
  Serious: Yes (Disabling)
  Sender: FDA-Public Use
  Company Number: US-GILEAD-2017-0301404

PATIENT
  Age: 42 Year
  Sex: Male
  Weight: 85.71 kg

DRUGS (3)
  1. ADVIL [Concomitant]
     Active Substance: IBUPROFEN
     Dosage: UNK
  2. STRIBILD [Suspect]
     Active Substance: COBICISTAT\ELVITEGRAVIR\EMTRICITABINE\TENOFOVIR DISOPROXIL FUMARATE
     Indication: HIV INFECTION
     Dosage: 1 DF, UNK
     Route: 048
     Dates: start: 201402, end: 20170417
  3. METHAMPHETAMINE                    /00069101/ [Concomitant]

REACTIONS (4)
  - Injury [Unknown]
  - Fall [Recovered/Resolved]
  - Labyrinthitis [Not Recovered/Not Resolved]
  - Unemployment [Unknown]

NARRATIVE: CASE EVENT DATE: 201702
